FAERS Safety Report 6503622-7 (Version None)
Quarter: 2009Q4

REPORT INFORMATION
  Report Type: 
  Country: None (occurrence: None)
  Receive Date: 20091217
  Receipt Date: 20091204
  Transmission Date: 20100525
  Serious: Yes (Hospitalization, Other)
  Sender: FDA-Public Use
  Company Number: JP-PFIZER INC-2009284165

PATIENT
  Age: 52 Year
  Sex: Male
  Weight: 67 kg

DRUGS (9)
  1. ZOLOFT [Suspect]
     Indication: DEPRESSION
     Dosage: 25 MG, 2X/DAY
     Route: 048
     Dates: start: 20090924, end: 20091004
  2. LIPITOR [Concomitant]
     Dosage: UNK
     Route: 048
  3. MYSLEE [Concomitant]
     Dosage: UNK
     Route: 048
  4. ANAFRANIL [Concomitant]
     Dosage: UNK
     Route: 048
  5. GASTER [Concomitant]
     Dosage: UNK
     Route: 048
  6. SEPAZON [Concomitant]
     Dosage: UNK
     Route: 048
  7. TELESMIN [Concomitant]
     Dosage: UNK
     Route: 048
  8. SULPIRIDE [Concomitant]
     Dosage: UNK
     Route: 048
  9. ALLOPURINOL [Concomitant]
     Dosage: UNK
     Route: 048

REACTIONS (1)
  - TOXIC SKIN ERUPTION [None]
